FAERS Safety Report 7376153-2 (Version None)
Quarter: 2011Q1

REPORT INFORMATION
  Report Type: 
  Country: None (occurrence: None)
  Receive Date: 20110325
  Receipt Date: 20110301
  Transmission Date: 20110831
  Serious: No
  Sender: FDA-Public Use
  Company Number: US-B.I. PHARMACEUTICALS,INC./RIDGEFIELD-2011-BP-05948BP

PATIENT
  Age: 82 Year
  Sex: Male

DRUGS (5)
  1. ASPIRIN [Concomitant]
     Indication: CARDIAC DISORDER
     Dosage: 81 MG
     Route: 048
  2. ALBUTEROL/IPATROPIUM [Concomitant]
     Indication: ASTHMA
     Route: 055
  3. PRADAXA [Suspect]
     Indication: ATRIAL FIBRILLATION
     Dosage: 300 MG
     Route: 048
     Dates: start: 20110101
  4. LASIX [Concomitant]
     Indication: CARDIAC DISORDER
     Route: 048
  5. COREG [Concomitant]
     Indication: HYPERTENSION
     Route: 048

REACTIONS (2)
  - FLATULENCE [None]
  - ERUCTATION [None]
